FAERS Safety Report 23897319 (Version 1)
Quarter: 2024Q2

REPORT INFORMATION
  Report Type: Spontaneous
  Country: US (occurrence: US)
  Receive Date: 20240524
  Receipt Date: 20240524
  Transmission Date: 20240716
  Serious: Yes (Hospitalization)
  Sender: FDA-Public Use
  Company Number: US-STERISCIENCE B.V.-2024-ST-000701

PATIENT
  Age: 59 Year
  Sex: Female

DRUGS (2)
  1. SODIUM BICARBONATE [Suspect]
     Active Substance: SODIUM BICARBONATE
     Indication: Hyperuricaemia
     Dosage: UNK
     Route: 042
  2. RASBURICASE [Suspect]
     Active Substance: RASBURICASE
     Indication: Hyperuricaemia
     Dosage: UNK
     Route: 065

REACTIONS (1)
  - Drug ineffective for unapproved indication [Unknown]
